FAERS Safety Report 14132178 (Version 1)
Quarter: 2017Q4

REPORT INFORMATION
  Report Type: Spontaneous
  Country: US (occurrence: US)
  Receive Date: 20171027
  Receipt Date: 20171027
  Transmission Date: 20180321
  Serious: Yes (Hospitalization)
  Sender: FDA-Public Use
  Company Number: US-BIOGEN-2017BI00476431

PATIENT
  Age: 56 Year
  Sex: Female

DRUGS (2)
  1. TECFIDERA [Suspect]
     Active Substance: DIMETHYL FUMARATE
     Indication: MULTIPLE SCLEROSIS
     Dosage: DURING THE FIRST WEEK
     Route: 065
     Dates: start: 20171005
  2. TECFIDERA [Suspect]
     Active Substance: DIMETHYL FUMARATE
     Route: 065

REACTIONS (4)
  - Muscle spasms [Unknown]
  - Electrolyte imbalance [Unknown]
  - Diarrhoea [Unknown]
  - Asthenia [Unknown]

NARRATIVE: CASE EVENT DATE: 201710
